FAERS Safety Report 4848868-9 (Version None)
Quarter: 2005Q4

REPORT INFORMATION
  Report Type: 
  Country: None (occurrence: None)
  Receive Date: 20051208
  Receipt Date: 20051130
  Transmission Date: 20060501
  Serious: Yes (Hospitalization)
  Sender: FDA-Public Use
  Company Number: DE-MERCK-0512DEU00007

PATIENT
  Age: 75 Year
  Sex: Male

DRUGS (4)
  1. INVANZ [Suspect]
     Indication: GRAFT INFECTION
     Route: 042
     Dates: start: 20050101, end: 20051118
  2. VANCOMYCIN [Concomitant]
     Indication: GRAFT INFECTION
     Route: 065
     Dates: start: 20050101
  3. PANTOPRAZOLE SODIUM [Concomitant]
     Route: 065
  4. [THERAPY UNSPECIFIED] [Concomitant]
     Route: 065

REACTIONS (5)
  - BLOOD ALKALINE PHOSPHATASE INCREASED [None]
  - BLOOD BILIRUBIN INCREASED [None]
  - GAMMA-GLUTAMYLTRANSFERASE INCREASED [None]
  - PROTHROMBIN TIME PROLONGED [None]
  - TRANSAMINASES INCREASED [None]
